FAERS Safety Report 11329833 (Version 1)
Quarter: 2015Q3

REPORT INFORMATION
  Report Type: Spontaneous
  Country: US (occurrence: US)
  Receive Date: 20150803
  Receipt Date: 20150803
  Transmission Date: 20151125
  Serious: Yes (Other)
  Sender: FDA-Public Use
  Company Number: US-BAYER-2015-387499

PATIENT
  Age: 28 Year
  Sex: Female

DRUGS (1)
  1. MIRENA [Suspect]
     Active Substance: LEVONORGESTREL
     Indication: CONTRACEPTION
     Dosage: 20 MCG/24HR, CONT
     Route: 015
     Dates: start: 201003

REACTIONS (5)
  - Amenorrhoea [None]
  - Cervix operation [None]
  - Procedural pain [None]
  - Abdominal pain [None]
  - Intentional device misuse [None]

NARRATIVE: CASE EVENT DATE: 201003
